FAERS Safety Report 8262414-1 (Version None)
Quarter: 2012Q2

REPORT INFORMATION
  Report Type: 
  Country: None (occurrence: None)
  Receive Date: 20120405
  Receipt Date: 20120329
  Transmission Date: 20120825
  Serious: Yes (Hospitalization, Other)
  Sender: FDA-Public Use
  Company Number: US-PFIZER INC-2012081411

PATIENT
  Age: 56 Year
  Sex: Female

DRUGS (4)
  1. CITALOPRAM HYDROBROMIDE [Suspect]
     Dosage: UNK
  2. METOPROLOL TARTRATE [Suspect]
     Dosage: UNK
  3. NIFEDIPINE [Suspect]
     Dosage: UNK
  4. AMITRIPTYLINE HCL [Suspect]
     Dosage: UNK

REACTIONS (3)
  - SHOCK [None]
  - HYPOGLYCAEMIA [None]
  - TOXICITY TO VARIOUS AGENTS [None]
